FAERS Safety Report 9770764 (Version 4)
Quarter: 2014Q1

REPORT INFORMATION
  Report Type: Spontaneous
  Country: US (occurrence: US)
  Receive Date: 20131218
  Receipt Date: 20140124
  Transmission Date: 20141002
  Serious: No
  Sender: FDA-Public Use
  Company Number: US-PFIZER INC-2013359841

PATIENT
  Age: 72 Year
  Sex: Male
  Weight: 68.93 kg

DRUGS (1)
  1. LIPITOR [Suspect]
     Indication: BLOOD CHOLESTEROL DECREASED
     Dosage: 25 MG, DAILY
     Dates: start: 20120823, end: 201306

REACTIONS (4)
  - Arrhythmia [Recovered/Resolved]
  - Muscle spasms [Unknown]
  - Muscle atrophy [Recovered/Resolved]
  - Muscle spasms [Recovered/Resolved]
